FAERS Safety Report 18603565 (Version 1)
Quarter: 2020Q4

REPORT INFORMATION
  Report Type: Report from Study
  Country: None (occurrence: US)
  Receive Date: 20201211
  Receipt Date: 20201211
  Transmission Date: 20210114
  Serious: Yes (Other)
  Sender: FDA-Public Use
  Company Number: US-ABBVIE-20K-163-3682579-00

PATIENT
  Sex: Female

DRUGS (1)
  1. HUMIRA [Suspect]
     Active Substance: ADALIMUMAB
     Indication: PRODUCT USED FOR UNKNOWN INDICATION
     Route: 058

REACTIONS (8)
  - Pain [Unknown]
  - Central pain syndrome [Unknown]
  - Migraine [Unknown]
  - Intestinal obstruction [Unknown]
  - Surgery [Recovering/Resolving]
  - Fibromyalgia [Unknown]
  - Unwanted awareness during anaesthesia [Unknown]
  - Dysmenorrhoea [Unknown]
